FAERS Safety Report 20524138 (Version 1)
Quarter: 2022Q1

REPORT INFORMATION
  Report Type: Other
  Country: US (occurrence: US)
  Receive Date: 20220228
  Receipt Date: 20220228
  Transmission Date: 20220424
  Serious: Yes (Other)
  Sender: FDA-Public Use
  Company Number: US-TOLMAR, INC.-21US031326

PATIENT
  Sex: Male

DRUGS (2)
  1. ELIGARD [Suspect]
     Active Substance: LEUPROLIDE ACETATE
     Indication: Product used for unknown indication
     Dosage: UNK
  2. ENZALUTAMIDE [Suspect]
     Active Substance: ENZALUTAMIDE
     Indication: Prostate cancer
     Dosage: 160 MILLIGRAM, QD
     Route: 048
     Dates: start: 20200811

REACTIONS (4)
  - Benign breast neoplasm [Unknown]
  - Nipple disorder [Unknown]
  - Nipple pain [Unknown]
  - Gynaecomastia [Unknown]
